FAERS Safety Report 8962185 (Version 1)
Quarter: 2012Q4

REPORT INFORMATION
  Report Type: 
  Country: US (occurrence: US)
  Receive Date: 20121212
  Receipt Date: 20121212
  Transmission Date: 20130627
  Serious: No
  Sender: FDA-Public Use
  Company Number: US-PFIZER INC-2012310307

PATIENT
  Sex: Female

DRUGS (3)
  1. CHANTIX [Suspect]
     Indication: SMOKING CESSATION THERAPY
     Dosage: UNK, daily
     Route: 048
     Dates: start: 201210, end: 201210
  2. CHANTIX [Suspect]
     Dosage: 1 mg, daily
     Route: 048
     Dates: start: 201210, end: 201210
  3. SERTRALINE [Concomitant]
     Dosage: UNK

REACTIONS (1)
  - Abdominal discomfort [Recovered/Resolved]
